FAERS Safety Report 5585088-7 (Version None)
Quarter: 2008Q1

REPORT INFORMATION
  Report Type: 
  Country: None (occurrence: None)
  Receive Date: 20080109
  Receipt Date: 20080102
  Transmission Date: 20080703
  Serious: Yes (Other)
  Sender: FDA-Public Use
  Company Number: GB-BOEHRINGER INGELHEIM PHARMACEUTICALS, INC.-2008-DE-00036GD

PATIENT
  Age: 27 Year
  Sex: Male

DRUGS (2)
  1. APTIVUS [Suspect]
     Indication: HIV INFECTION
     Dosage: TIPRANAVIR 1000 MG/RITONAVIR 400 MG
  2. FUZEON [Suspect]
     Indication: HIV INFECTION
     Route: 058

REACTIONS (5)
  - HAEMARTHROSIS [None]
  - HAEMORRHAGIC DIATHESIS [None]
  - INJECTION SITE BRUISING [None]
  - INJECTION SITE HAEMATOMA [None]
  - SOFT TISSUE HAEMORRHAGE [None]
